FAERS Safety Report 8074755-1 (Version None)
Quarter: 2012Q1

REPORT INFORMATION
  Report Type: 
  Country: None (occurrence: None)
  Receive Date: 20120126
  Receipt Date: 20120119
  Transmission Date: 20120608
  Serious: Yes (Hospitalization, Disabling, Other)
  Sender: FDA-Public Use
  Company Number: US-MERCK-0511USA00806

PATIENT
  Age: 46 Year
  Sex: Male
  Weight: 73 kg

DRUGS (11)
  1. VIOXX [Suspect]
     Route: 048
     Dates: start: 20000401, end: 20040930
  2. CLONOPIN [Concomitant]
     Route: 065
  3. FOSAMAX [Suspect]
     Route: 048
     Dates: start: 20040601, end: 20060101
  4. PROTONIX [Concomitant]
     Route: 065
  5. FOSAMAX [Suspect]
     Indication: OSTEOPOROSIS
     Route: 048
     Dates: start: 19980101
  6. PREDNISONE [Concomitant]
     Route: 065
  7. VIOXX [Suspect]
     Indication: ARTHRITIS
     Route: 048
     Dates: start: 20000401, end: 20040930
  8. VIOXX [Suspect]
     Route: 048
     Dates: start: 20000401, end: 20040930
  9. FOSAMAX [Suspect]
     Route: 048
     Dates: start: 20020101, end: 20030201
  10. OXYCONTIN [Concomitant]
     Route: 065
  11. VIOXX [Suspect]
     Indication: ANKYLOSING SPONDYLITIS
     Route: 048
     Dates: start: 20000401, end: 20040930

REACTIONS (78)
  - ARTHROPATHY [None]
  - SEPSIS [None]
  - POSTOPERATIVE FEVER [None]
  - ADVERSE DRUG REACTION [None]
  - VOMITING [None]
  - THIRST [None]
  - WEIGHT DECREASED [None]
  - NEPHRITIS [None]
  - IRRITABLE BOWEL SYNDROME [None]
  - DRY MOUTH [None]
  - DEPRESSION [None]
  - ROAD TRAFFIC ACCIDENT [None]
  - PAIN [None]
  - SINUS DISORDER [None]
  - BLOOD DISORDER [None]
  - FEMUR FRACTURE [None]
  - ANAEMIA [None]
  - PANCREATITIS [None]
  - SYNOVITIS [None]
  - WRIST FRACTURE [None]
  - SEBORRHOEIC DERMATITIS [None]
  - ANKYLOSING SPONDYLITIS [None]
  - LUMBAR VERTEBRAL FRACTURE [None]
  - INFECTION [None]
  - UROSEPSIS [None]
  - SEPTIC SHOCK [None]
  - RENAL FAILURE ACUTE [None]
  - ASTHENIA [None]
  - JOINT EFFUSION [None]
  - OSTEOPENIA [None]
  - DYSPHONIA [None]
  - GASTROINTESTINAL DISORDER [None]
  - STAPHYLOCOCCAL INFECTION [None]
  - ENTEROCOCCAL INFECTION [None]
  - MUSCLE STRAIN [None]
  - DYSPNOEA [None]
  - DEHYDRATION [None]
  - DUODENITIS [None]
  - PYREXIA [None]
  - SPINAL DISORDER [None]
  - IRITIS [None]
  - SINUSITIS [None]
  - EMPHYSEMA [None]
  - CHANGE OF BOWEL HABIT [None]
  - BONE DISORDER [None]
  - AUTOIMMUNE ARTHRITIS [None]
  - HYPERGLYCAEMIA [None]
  - ARTHRITIS BACTERIAL [None]
  - OSTEOMYELITIS [None]
  - COMPRESSION FRACTURE [None]
  - TONSILLAR DISORDER [None]
  - STEROID THERAPY [None]
  - POLYARTHRITIS [None]
  - LIGHT CHAIN ANALYSIS INCREASED [None]
  - ANOSMIA [None]
  - DYSPEPSIA [None]
  - ABDOMINAL PAIN [None]
  - DEVICE MALFUNCTION [None]
  - NAUSEA [None]
  - FUNGAL INFECTION [None]
  - WOUND DRAINAGE [None]
  - DIARRHOEA [None]
  - HYPERHIDROSIS [None]
  - PROSTATIC DISORDER [None]
  - HERPES ZOSTER [None]
  - HEADACHE [None]
  - FATIGUE [None]
  - DRUG INEFFECTIVE [None]
  - FALL [None]
  - PSEUDARTHROSIS [None]
  - RASH [None]
  - ARTHRITIS [None]
  - BONE FORMATION DECREASED [None]
  - NECK PAIN [None]
  - RHEUMATOID ARTHRITIS [None]
  - IMPAIRED HEALING [None]
  - LIPASE INCREASED [None]
  - HYPERTENSION [None]
